FAERS Safety Report 10216573 (Version 2)
Quarter: 2014Q4

REPORT INFORMATION
  Report Type: Spontaneous
  Country: US (occurrence: US)
  Receive Date: 20140604
  Receipt Date: 20141010
  Transmission Date: 20150528
  Serious: Yes (Hospitalization)
  Sender: FDA-Public Use
  Company Number: US-BAYER-2014-081307

PATIENT
  Age: 40 Year
  Sex: Female
  Weight: 61.22 kg

DRUGS (3)
  1. MIRENA [Suspect]
     Active Substance: LEVONORGESTREL
     Indication: CONTRACEPTION
     Dosage: 20 ?G, CONT
     Route: 015
     Dates: start: 20090427, end: 20120612
  2. NORCO [Concomitant]
     Active Substance: ACETAMINOPHEN\HYDROCODONE BITARTRATE
  3. MULTIVITAMIN [Concomitant]
     Active Substance: VITAMINS

REACTIONS (18)
  - Medical device complication [None]
  - Internal injury [None]
  - Depression [None]
  - Fear of disease [None]
  - Pain [None]
  - Anxiety [None]
  - Depressed mood [None]
  - Menorrhagia [None]
  - Genital haemorrhage [None]
  - Medical device discomfort [None]
  - Back pain [None]
  - Device issue [None]
  - Uterine perforation [None]
  - Emotional distress [None]
  - Injury [None]
  - Device difficult to use [None]
  - Pelvic pain [None]
  - Abdominal pain [None]

NARRATIVE: CASE EVENT DATE: 200904
